FAERS Safety Report 14387505 (Version 2)
Quarter: 2018Q4

REPORT INFORMATION
  Report Type: Spontaneous
  Country: US (occurrence: US)
  Receive Date: 20180115
  Receipt Date: 20181116
  Transmission Date: 20190204
  Serious: Yes (Other)
  Sender: FDA-Public Use
  Company Number: US-SA-2017SA196499

PATIENT
  Age: 70 Year
  Sex: Female
  Weight: 80.7 kg

DRUGS (16)
  1. FEMARA [Concomitant]
     Active Substance: LETROZOLE
     Dosage: UNK
  2. PARAPLATIN [Concomitant]
     Active Substance: CARBOPLATIN
  3. TAXOTERE [Suspect]
     Active Substance: DOCETAXEL
     Indication: BREAST CANCER
     Dosage: UNK UNK,QCY
     Route: 042
     Dates: start: 20140107, end: 20140107
  4. TENORMIN [Concomitant]
     Active Substance: ATENOLOL
     Dosage: UNK
     Dates: start: 2003
  5. INSULIN GLARGINE [Concomitant]
     Active Substance: INSULIN GLARGINE
     Dosage: UNK
  6. ZANTAC [Concomitant]
     Active Substance: RANITIDINE HYDROCHLORIDE
     Dosage: UNK
  7. ASPIR LOW [Concomitant]
     Active Substance: ASPIRIN
     Dosage: UNK
     Dates: start: 1998
  8. TRAVATAN Z [Concomitant]
     Active Substance: TRAVOPROST
     Dosage: UNK
  9. TAXOTERE [Suspect]
     Active Substance: DOCETAXEL
     Dosage: UNK UNK,QCY
     Route: 042
     Dates: start: 20140422, end: 20140422
  10. NOVOLOG [Concomitant]
     Active Substance: INSULIN ASPART
     Dosage: UNK
     Dates: start: 2003
  11. TEGRETOL [Concomitant]
     Active Substance: CARBAMAZEPINE
     Dosage: UNK
  12. NORVASC [Concomitant]
     Active Substance: AMLODIPINE BESYLATE
     Dosage: UNK
     Dates: start: 2003
  13. LIPITOR [Concomitant]
     Active Substance: ATORVASTATIN CALCIUM
     Dosage: UNK
     Dates: start: 2003
  14. DIOVAN HCT [Concomitant]
     Active Substance: HYDROCHLOROTHIAZIDE\VALSARTAN
     Dosage: UNK
     Dates: start: 2008
  15. VITAMIN B12 [Concomitant]
     Active Substance: CYANOCOBALAMIN
     Route: 048
  16. VITAMIN D3 [Concomitant]
     Active Substance: CHOLECALCIFEROL

REACTIONS (2)
  - Psychological trauma [Unknown]
  - Alopecia [Not Recovered/Not Resolved]

NARRATIVE: CASE EVENT DATE: 201410
